FAERS Safety Report 23537848 (Version 1)
Quarter: 2024Q1

REPORT INFORMATION
  Report Type: Spontaneous
  Country: CA (occurrence: None)
  Receive Date: 20240219
  Receipt Date: 20240219
  Transmission Date: 20240410
  Serious: Yes (Other)
  Sender: FDA-Public Use
  Company Number: 2024A038717

PATIENT
  Age: 69 Year
  Sex: Female

DRUGS (4)
  1. ASTRAZENECA COVID-19 VACCINE [Suspect]
     Active Substance: AZD-1222
     Indication: COVID-19 immunisation
     Route: 030
     Dates: start: 20210326, end: 20210326
  2. CANDESARTAN [Suspect]
     Active Substance: CANDESARTAN
     Route: 048
     Dates: start: 20130101
  3. SYMBICORT [Suspect]
     Active Substance: BUDESONIDE\FORMOTEROL FUMARATE DIHYDRATE
     Route: 055
     Dates: start: 20210915
  4. COMIRNATY (RAXTOZINAMERAN) [Suspect]
     Active Substance: RAXTOZINAMERAN
     Indication: COVID-19 immunisation
     Dosage: ONCE/SINGLE ADMINISTRATION
     Dates: start: 20231021, end: 20231021

REACTIONS (2)
  - Vaccination failure [Unknown]
  - COVID-19 [Unknown]
